FAERS Safety Report 13344935 (Version 1)
Quarter: 2017Q1

REPORT INFORMATION
  Report Type: Spontaneous
  Country: DE (occurrence: DE)
  Receive Date: 20170317
  Receipt Date: 20170317
  Transmission Date: 20170428
  Serious: Yes (Other)
  Sender: FDA-Public Use
  Company Number: DE-009507513-1703DEU007570

PATIENT
  Age: 77 Year
  Sex: Female

DRUGS (1)
  1. OVESTIN 1MG CR?ME [Suspect]
     Active Substance: ESTRIOL
     Indication: VULVOVAGINAL DRYNESS
     Dosage: HALF OF A SYRINGE ONCE TO TWICE WEEKLY
     Route: 067

REACTIONS (3)
  - Uterine disorder [Unknown]
  - Plasma cell myeloma [Unknown]
  - Off label use [Unknown]
